FAERS Safety Report 7347111-9 (Version None)
Quarter: 2011Q1

REPORT INFORMATION
  Report Type: 
  Country: None (occurrence: None)
  Receive Date: 20110311
  Receipt Date: 20110211
  Transmission Date: 20110831
  Serious: No
  Sender: FDA-Public Use
  Company Number: US-B.I. PHARMACEUTICALS,INC./RIDGEFIELD-2011-BP-01308BP

PATIENT
  Sex: Female

DRUGS (13)
  1. MAXZIDE [Concomitant]
     Indication: HYPERTENSION
     Dosage: 25 MG
     Route: 048
  2. PRISTIQ [Concomitant]
     Indication: DEPRESSION
     Dosage: 50 MG
     Route: 048
  3. CRESTOR [Concomitant]
     Indication: BLOOD CHOLESTEROL INCREASED
     Dosage: 20 MG
     Route: 048
  4. TRAZODONE HCL [Concomitant]
     Indication: INSOMNIA
  5. LORATADINE [Concomitant]
     Indication: SEASONAL ALLERGY
     Route: 048
  6. ZANTAC [Concomitant]
     Indication: ARTHROPOD BITE
     Dosage: 300 MG
     Route: 048
     Dates: start: 20090401
  7. ZANTAC [Concomitant]
     Indication: ABDOMINAL DISCOMFORT
  8. LOPRESSOR [Concomitant]
     Indication: HYPERTENSION
     Dosage: 150 MG
     Route: 048
  9. MEFORMIN [Concomitant]
     Indication: GLUCOSE TOLERANCE IMPAIRED
     Dosage: 500 MG
     Route: 048
  10. PRADAXA [Suspect]
     Indication: ATRIAL FIBRILLATION
     Dosage: 300 MG
     Route: 048
     Dates: start: 20110108
  11. TRAZODONE HCL [Concomitant]
     Indication: DEPRESSION
     Dosage: 50 MG
     Route: 048
  12. ASPIRIN [Concomitant]
     Indication: PROPHYLAXIS
     Dosage: 81 MG
     Route: 048
  13. LOVAZA [Concomitant]
     Indication: BLOOD TRIGLYCERIDES INCREASED
     Dosage: 15 MG
     Route: 048

REACTIONS (4)
  - DYSPNOEA [None]
  - DYSPEPSIA [None]
  - ABDOMINAL PAIN UPPER [None]
  - FATIGUE [None]
